FAERS Safety Report 4622745-0 (Version None)
Quarter: 2005Q1

REPORT INFORMATION
  Report Type: 
  Country: None (occurrence: None)
  Receive Date: 20050317
  Receipt Date: 20041014
  Transmission Date: 20050727
  Serious: Yes (Hospitalization)
  Sender: FDA-Public Use
  Company Number: PHEH2004US09705

PATIENT
  Age: 60 Year
  Sex: Male

DRUGS (6)
  1. TRILEPTAL [Suspect]
     Indication: CONVULSION
     Dosage: 3X 300 MG, BID; ORAL
     Route: 048
     Dates: start: 20040617
  2. TRILEPTAL [Suspect]
     Dosage: 2 X 300 MG, BID; ORAL
     Route: 048
  3. LANTUS [Concomitant]
  4. HUMALOG [Concomitant]
  5. LIPITOR [Concomitant]
  6. ACCUPRIL [Concomitant]

REACTIONS (4)
  - CONVULSION [None]
  - HYPERGLYCAEMIA [None]
  - HYPOGLYCAEMIA [None]
  - HYPONATRAEMIA [None]
